FAERS Safety Report 5152939-X (Version None)
Quarter: 2006Q4

REPORT INFORMATION
  Report Type: 
  Country: None (occurrence: None)
  Receive Date: 20061114
  Receipt Date: 20061114
  Transmission Date: 20070319
  Serious: No
  Sender: FDA-Public Use
  Company Number: None

PATIENT

DRUGS (3)
  1. OUTLOOK IV PUMP [Suspect]
     Dosage: CAPSULE
  2. LIDOCAINE [Suspect]
     Dosage: INJECTABLE
  3. MEXILETINE HYDROCHLORIDE [Suspect]
     Dosage: CAPSULE

REACTIONS (7)
  - CONVULSION [None]
  - DYSARTHRIA [None]
  - GLASGOW COMA SCALE ABNORMAL [None]
  - INCORRECT DRUG ADMINISTRATION RATE [None]
  - MEDICATION ERROR [None]
  - SOMNOLENCE [None]
  - TONGUE DISORDER [None]
